FAERS Safety Report 5996545-3 (Version None)
Quarter: 2008Q4

REPORT INFORMATION
  Report Type: 
  Country: None (occurrence: None)
  Receive Date: 20081212
  Receipt Date: 20081017
  Transmission Date: 20090506
  Serious: No
  Sender: FDA-Public Use
  Company Number: US-ABBOTT-08P-163-0482646-00

PATIENT
  Sex: Female
  Weight: 52.21 kg

DRUGS (6)
  1. HUMIRA [Suspect]
     Indication: ANKYLOSING SPONDYLITIS
     Dates: start: 20060101
  2. HUMIRA [Suspect]
     Indication: CROHN'S DISEASE
  3. PURINETHOL [Concomitant]
     Indication: CROHN'S DISEASE
     Route: 048
     Dates: start: 20030101
  4. OMEPRAZOLE [Concomitant]
     Indication: CROHN'S DISEASE
     Route: 048
     Dates: start: 20070101
  5. NORTRYPTALIN [Concomitant]
     Indication: PAIN
     Route: 048
     Dates: start: 20030101
  6. ANOVLAR [Concomitant]
     Indication: ENDOMETRIOSIS
     Dates: start: 20070101

REACTIONS (3)
  - CHILLS [None]
  - NIGHT SWEATS [None]
  - PYREXIA [None]
